FAERS Safety Report 4673093-4 (Version None)
Quarter: 2005Q2

REPORT INFORMATION
  Report Type: 
  Country: None (occurrence: None)
  Receive Date: 20050524
  Receipt Date: 20050524
  Transmission Date: 20051028
  Serious: Yes (Hospitalization)
  Sender: FDA-Public Use
  Company Number: None

PATIENT
  Sex: Female
  Weight: 78.9259 kg

DRUGS (2)
  1. SIMVASTATIN [Suspect]
     Indication: HYPERLIPIDAEMIA
     Dosage: 80 MG DAILY ORAL
     Route: 048
     Dates: start: 20040928, end: 20050511
  2. CLARITHROMYCIN [Suspect]
     Indication: BRONCHITIS
     Dosage: 500 MG  BID ORAL
     Route: 048
     Dates: start: 20050425, end: 20050511

REACTIONS (3)
  - ACTIVITIES OF DAILY LIVING IMPAIRED [None]
  - DRUG INTERACTION [None]
  - RHABDOMYOLYSIS [None]
